FAERS Safety Report 7022762-X (Version None)
Quarter: 2010Q3

REPORT INFORMATION
  Report Type: 
  Country: None (occurrence: None)
  Receive Date: 20100930
  Receipt Date: 20100927
  Transmission Date: 20110219
  Serious: Yes (Hospitalization)
  Sender: FDA-Public Use
  Company Number: A0883868A

PATIENT
  Age: 61 Year
  Sex: Male

DRUGS (2)
  1. AVANDIA [Suspect]
     Dosage: 8MG PER DAY
     Route: 048
     Dates: start: 19991019, end: 20070622
  2. AVANDAMET [Suspect]
     Route: 048
     Dates: start: 20041227, end: 20050322

REACTIONS (1)
  - MYOCARDIAL INFARCTION [None]
